FAERS Safety Report 9638535 (Version 1)
Quarter: 2013Q4

REPORT INFORMATION
  Report Type: Spontaneous
  Country: JP (occurrence: JP)
  Receive Date: 20131022
  Receipt Date: 20131022
  Transmission Date: 20140711
  Serious: Yes (Other)
  Sender: FDA-Public Use
  Company Number: PHHY2013JP118339

PATIENT
  Sex: 0

DRUGS (2)
  1. TERNELIN [Suspect]
     Dosage: UNK UKN, UNK
     Route: 048
  2. PURSENNID [Suspect]
     Dosage: UNK UKN, UNK
     Route: 048

REACTIONS (1)
  - Tendinous contracture [Unknown]
